FAERS Safety Report 20386008 (Version 6)
Quarter: 2024Q2

REPORT INFORMATION
  Report Type: Spontaneous
  Country: US (occurrence: US)
  Receive Date: 20220127
  Receipt Date: 20240514
  Transmission Date: 20240716
  Serious: Yes (Hospitalization, Other)
  Sender: FDA-Public Use
  Company Number: US-PFIZER INC-202101440077

PATIENT
  Age: 71 Year
  Sex: Male
  Weight: 87.528 kg

DRUGS (1)
  1. XELJANZ XR [Suspect]
     Active Substance: TOFACITINIB CITRATE
     Dosage: 11 MG, 1X/DAY

REACTIONS (4)
  - Spinal operation [Not Recovered/Not Resolved]
  - Herpes zoster [Recovered/Resolved]
  - Disorientation [Unknown]
  - Pain [Unknown]

NARRATIVE: CASE EVENT DATE: 20211021
